FAERS Safety Report 8558948-2 (Version None)
Quarter: 2012Q3

REPORT INFORMATION
  Report Type: 
  Country: None (occurrence: None)
  Receive Date: 20120802
  Receipt Date: 20120723
  Transmission Date: 20120928
  Serious: Yes (Hospitalization)
  Sender: FDA-Public Use
  Company Number: US-MSD-1207USA010762

PATIENT

DRUGS (7)
  1. ZOCOR [Suspect]
     Dosage: 40 MG, QD
     Route: 048
  2. DAPTOMYCIN [Suspect]
     Dosage: 900 MG, QD
     Route: 042
  3. DAPTOMYCIN [Suspect]
     Dosage: 680 MG, QD
     Route: 042
  4. VANCOMYCIN [Concomitant]
  5. GENTAMICIN [Concomitant]
  6. CEFEPIME [Concomitant]
  7. LEVOFLOXACIN [Concomitant]

REACTIONS (4)
  - BLOOD POTASSIUM INCREASED [None]
  - RHABDOMYOLYSIS [None]
  - POTENTIATING DRUG INTERACTION [None]
  - BLOOD CREATININE INCREASED [None]
